FAERS Safety Report 22057006 (Version 2)
Quarter: 2023Q1

REPORT INFORMATION
  Report Type: Other
  Country: FR (occurrence: FR)
  Receive Date: 20230303
  Receipt Date: 20230330
  Transmission Date: 20230417
  Serious: Yes (Death)
  Sender: FDA-Public Use
  Company Number: FR-ROCHE-3296689

PATIENT
  Age: 67 Year
  Sex: Female

DRUGS (1)
  1. RITUXIMAB [Suspect]
     Active Substance: RITUXIMAB
     Indication: Cryoglobulinaemia
     Dosage: 4 WEEKLY OR 1 G AT DAY 1 AND DAY 15
     Route: 042

REACTIONS (2)
  - Cryoglobulinaemia [Fatal]
  - Off label use [Fatal]
